FAERS Safety Report 7207693-4 (Version None)
Quarter: 2011Q1

REPORT INFORMATION
  Report Type: 
  Country: None (occurrence: None)
  Receive Date: 20110103
  Receipt Date: 20110102
  Transmission Date: 20110831
  Serious: Yes (Other)
  Sender: FDA-Public Use
  Company Number: US-PFIZER INC-2011000062

PATIENT
  Sex: Male
  Weight: 98.866 kg

DRUGS (1)
  1. VIAGRA [Suspect]
     Dosage: UNK
     Route: 048

REACTIONS (3)
  - SUICIDAL IDEATION [None]
  - ERECTION INCREASED [None]
  - NERVOUSNESS [None]
